FAERS Safety Report 10051527 (Version 1)
Quarter: 2014Q2

REPORT INFORMATION
  Report Type: Report from Study
  Country: US (occurrence: US)
  Receive Date: 20140401
  Receipt Date: 20140401
  Transmission Date: 20141212
  Serious: Yes (Hospitalization)
  Sender: FDA-Public Use
  Company Number: US-ABBVIE-14P-163-1216607-00

PATIENT
  Age: 61 Year
  Sex: Female

DRUGS (2)
  1. HUMIRA [Suspect]
     Indication: CROHN^S DISEASE
     Dates: start: 201301
  2. HUMIRA [Suspect]
     Indication: RHEUMATOID ARTHRITIS

REACTIONS (9)
  - Inflammation [Recovering/Resolving]
  - Injection site pain [Not Recovered/Not Resolved]
  - Drug ineffective [Recovering/Resolving]
  - Abdominal pain upper [Unknown]
  - Abdominal distension [Unknown]
  - Diverticulum [Unknown]
  - Device issue [Unknown]
  - Injection site extravasation [Unknown]
  - Diarrhoea [Unknown]
